FAERS Safety Report 14964006 (Version 1)
Quarter: 2018Q2

REPORT INFORMATION
  Report Type: Spontaneous
  Country: AU (occurrence: AU)
  Receive Date: 20180601
  Receipt Date: 20180601
  Transmission Date: 20180711
  Serious: Yes (Other)
  Sender: FDA-Public Use
  Company Number: AU-GLENMARK PHARMACEUTICALS-2018GMK035838

PATIENT
  Age: 14 Year
  Sex: Male

DRUGS (1)
  1. VORICONAZOLE. [Suspect]
     Active Substance: VORICONAZOLE
     Indication: ASPERGILLUS INFECTION
     Dosage: 400 MG, OD
     Route: 065

REACTIONS (6)
  - Lentigo [Unknown]
  - Photosensitivity reaction [Unknown]
  - Bowen^s disease [Unknown]
  - Squamous cell carcinoma [Unknown]
  - Periostitis [Unknown]
  - Actinic keratosis [Unknown]
